FAERS Safety Report 10757319 (Version 1)
Quarter: 2015Q1

REPORT INFORMATION
  Report Type: Spontaneous
  Country: US (occurrence: None)
  Receive Date: 20150130
  Receipt Date: 20150130
  Transmission Date: 20150721
  Serious: Yes (Hospitalization)
  Sender: FDA-Public Use
  Company Number: 1501TWN004005

PATIENT
  Age: 57 Year
  Sex: Female

DRUGS (1)
  1. SEFTUM, 100 MG, MERCK (CEFTIBUTEN) [Suspect]
     Active Substance: CEFTIBUTEN
     Indication: URINARY TRACT INFECTION
     Route: 048
     Dates: start: 20141008, end: 20141011

REACTIONS (8)
  - Decreased appetite [None]
  - Fatigue [None]
  - Chromaturia [None]
  - Dizziness [None]
  - Pyrexia [None]
  - Rash [None]
  - Diarrhoea [None]
  - Chills [None]

NARRATIVE: CASE EVENT DATE: 20141011
